FAERS Safety Report 14159848 (Version 2)
Quarter: 2018Q1

REPORT INFORMATION
  Report Type: Spontaneous
  Country: GB (occurrence: GB)
  Receive Date: 20171106
  Receipt Date: 20180115
  Transmission Date: 20180508
  Serious: Yes (Other)
  Sender: FDA-Public Use
  Company Number: GB-AUROBINDO-AUR-APL-2017-43131

PATIENT
  Sex: Male

DRUGS (1)
  1. TOPIRAMATE FILM-COATED TABLET [Suspect]
     Active Substance: TOPIRAMATE
     Indication: SEIZURE
     Dosage: ()
     Route: 048

REACTIONS (1)
  - Seizure [Recovered/Resolved]
